FAERS Safety Report 10662586 (Version 1)
Quarter: 2014Q4

REPORT INFORMATION
  Report Type: Other
  Country: GB (occurrence: GB)
  Receive Date: 20141218
  Receipt Date: 20141218
  Transmission Date: 20150529
  Serious: Yes (Other)
  Sender: FDA-Public Use
  Company Number: GB-PERRIGO-14GB012113

PATIENT
  Age: 64 Year
  Sex: Male

DRUGS (1)
  1. EXTRA POWER PAIN RELIEVER 12063/0009 [Suspect]
     Active Substance: ACETAMINOPHEN\ASPIRIN\CAFFEINE
     Indication: HEADACHE
     Dosage: 1 DF, 6 TIMES DAILY
     Route: 048
     Dates: start: 20101101, end: 20141104

REACTIONS (4)
  - Vomiting [Recovered/Resolved]
  - Gastritis [Recovering/Resolving]
  - Duodenal ulcer [Recovering/Resolving]
  - Duodenal stenosis [Recovering/Resolving]

NARRATIVE: CASE EVENT DATE: 201411
